FAERS Safety Report 6639147-8 (Version None)
Quarter: 2010Q1

REPORT INFORMATION
  Report Type: 
  Country: None (occurrence: None)
  Receive Date: 20100312
  Receipt Date: 20100225
  Transmission Date: 20100710
  Serious: Yes (Hospitalization)
  Sender: FDA-Public Use
  Company Number: 008817

PATIENT
  Age: 85 Year
  Sex: Male

DRUGS (6)
  1. PLETAL [Suspect]
     Indication: CEREBRAL INFARCTION
     Dosage: 50 MG, QD, ORAL; 100 MG, QD, ORAL
     Route: 048
     Dates: start: 20091208, end: 20100117
  2. PLETAL [Suspect]
     Indication: CEREBRAL INFARCTION
     Dosage: 50 MG, QD, ORAL; 100 MG, QD, ORAL
     Route: 048
     Dates: start: 20100118, end: 20100128
  3. APRITONE (APRINDINE HYDROCHLORIDE) CAPSULE [Suspect]
     Dosage: ORAL
     Route: 048
  4. ATENOTE (CARVEDILOL) [Concomitant]
  5. ALLOPURINOL [Concomitant]
  6. NORVASC [Concomitant]

REACTIONS (2)
  - GRANULOCYTE COUNT DECREASED [None]
  - WHITE BLOOD CELL COUNT DECREASED [None]
